FAERS Safety Report 5106970-0 (Version None)
Quarter: 2006Q3

REPORT INFORMATION
  Report Type: 
  Country: None (occurrence: None)
  Receive Date: 20060913
  Receipt Date: 20060829
  Transmission Date: 20061208
  Serious: Yes (Hospitalization)
  Sender: FDA-Public Use
  Company Number: 2006VX001224

PATIENT
  Age: 55 Year
  Sex: Male

DRUGS (6)
  1. PERGOLIDE MESYLATE [Suspect]
     Indication: PARKINSON'S DISEASE
     Dosage: PO
     Route: 048
     Dates: start: 19960615
  2. SINEMET [Suspect]
     Dates: start: 19960615
  3. PRAMIPEXOLE DIHYDROCHLORIDE [Suspect]
     Dates: end: 20060411
  4. ENTACAPONE (ENTACAPONE) [Suspect]
  5. SIFROL [Concomitant]
  6. SINEMET [Concomitant]

REACTIONS (10)
  - ABNORMAL BEHAVIOUR [None]
  - AGGRESSION [None]
  - DYSKINESIA [None]
  - LIBIDO INCREASED [None]
  - MARITAL PROBLEM [None]
  - MOTOR DYSFUNCTION [None]
  - PATHOLOGICAL GAMBLING [None]
  - PSYCHOMOTOR HYPERACTIVITY [None]
  - THERAPY NON-RESPONDER [None]
  - THINKING ABNORMAL [None]
